FAERS Safety Report 4869675-7 (Version None)
Quarter: 2005Q4

REPORT INFORMATION
  Report Type: 
  Country: None (occurrence: None)
  Receive Date: 20051223
  Receipt Date: 20051215
  Transmission Date: 20060501
  Serious: Yes (Hospitalization)
  Sender: FDA-Public Use
  Company Number: FRWYE238615DEC05

PATIENT
  Age: 25 Year
  Sex: Female

DRUGS (11)
  1. ETHINYL ESTRADIOL AND LEVONORGESTREL [Suspect]
     Indication: ORAL CONTRACEPTION
     Dosage: 1 TABLET 1X PER 1 DAY, ORAL
     Route: 048
  2. COLCHICINE (COLCHICINE, , 0) [Suspect]
     Indication: APHTHOUS STOMATITIS
     Dosage: 1 MG 1 X PER 1 DAY, ORAL
     Route: 048
     Dates: start: 20041213, end: 20050621
  3. FOLIC ACID [Suspect]
     Indication: APHTHOUS STOMATITIS
     Dosage: 5 MG 1X PER 1 DAY, ORAL
     Route: 048
     Dates: start: 20041213, end: 20050613
  4. THALIDOMIDE (THALIDOMIDE, , 0) [Suspect]
     Indication: APHTHOUS STOMATITIS
     Dosage: SEE IMAGE
     Route: 048
     Dates: start: 20040203, end: 20040413
  5. THALIDOMIDE (THALIDOMIDE, , 0) [Suspect]
     Indication: EPISCLERITIS
     Dosage: SEE IMAGE
     Route: 048
     Dates: start: 20040203, end: 20040413
  6. THALIDOMIDE (THALIDOMIDE, , 0) [Suspect]
     Indication: APHTHOUS STOMATITIS
     Dosage: SEE IMAGE
     Route: 048
     Dates: start: 20040414, end: 20041015
  7. THALIDOMIDE (THALIDOMIDE, , 0) [Suspect]
     Indication: EPISCLERITIS
     Dosage: SEE IMAGE
     Route: 048
     Dates: start: 20040414, end: 20041015
  8. THALIDOMIDE (THALIDOMIDE, , 0) [Suspect]
     Indication: APHTHOUS STOMATITIS
     Dosage: SEE IMAGE
     Route: 048
     Dates: start: 20041016, end: 20041213
  9. THALIDOMIDE (THALIDOMIDE, , 0) [Suspect]
     Indication: EPISCLERITIS
     Dosage: SEE IMAGE
     Route: 048
     Dates: start: 20041016, end: 20041213
  10. THALIDOMIDE (THALIDOMIDE, , 0) [Suspect]
     Indication: APHTHOUS STOMATITIS
     Dosage: SEE IMAGE
     Route: 048
     Dates: start: 20041214
  11. THALIDOMIDE (THALIDOMIDE, , 0) [Suspect]
     Indication: EPISCLERITIS
     Dosage: SEE IMAGE
     Route: 048
     Dates: start: 20041214

REACTIONS (5)
  - CONDITION AGGRAVATED [None]
  - DRY EYE [None]
  - DRY SKIN [None]
  - ECZEMA [None]
  - PERIPHERAL SENSORY NEUROPATHY [None]
